FAERS Safety Report 14333723 (Version 1)
Quarter: 2017Q4

REPORT INFORMATION
  Report Type: Report from Study
  Country: FR (occurrence: FR)
  Receive Date: 20171228
  Receipt Date: 20171228
  Transmission Date: 20180321
  Serious: Yes (Other)
  Sender: FDA-Public Use
  Company Number: FR-PFIZER INC-2017548146

PATIENT
  Age: 61 Year
  Sex: Female
  Weight: 55 kg

DRUGS (11)
  1. TANAKAN [Concomitant]
     Active Substance: GINKGO
     Dosage: 40 MG, 1X/DAY
  2. FLUOROURACIL. [Suspect]
     Active Substance: FLUOROURACIL
     Dosage: 3744 MG, UNK
     Route: 041
     Dates: start: 20160926
  3. AVASTIN [Suspect]
     Active Substance: BEVACIZUMAB
     Indication: COLORECTAL CANCER METASTATIC
     Dosage: 275 MG, UNK
     Dates: start: 20160926
  4. FLUOROURACIL. [Suspect]
     Active Substance: FLUOROURACIL
     Dosage: 3696 MG, UNK
     Route: 041
     Dates: start: 20170626
  5. AVASTIN [Suspect]
     Active Substance: BEVACIZUMAB
     Dosage: 265 MG, UNK
     Route: 065
     Dates: start: 20170626
  6. CALCIUM LEVOFOLINATE [Suspect]
     Active Substance: LEVOLEUCOVORIN CALCIUM
     Dosage: 308 MG, UNK
     Dates: start: 20170626
  7. FLUOROURACIL. [Suspect]
     Active Substance: FLUOROURACIL
     Indication: COLORECTAL CANCER METASTATIC
     Dosage: 624 MG, UNK
     Route: 040
     Dates: start: 20160926
  8. FLUOROURACIL. [Suspect]
     Active Substance: FLUOROURACIL
     Dosage: 308 MG, UNK
     Route: 040
     Dates: start: 20170626
  9. LIORESAL [Concomitant]
     Active Substance: BACLOFEN
     Dosage: 10 MG 6 TIMES PER DAY
  10. OXALIPLATIN. [Suspect]
     Active Substance: OXALIPLATIN
     Indication: COLORECTAL CANCER METASTATIC
     Dosage: 106.08 MG, UNK
     Dates: start: 20160926
  11. CALCIUM LEVOFOLINATE [Suspect]
     Active Substance: LEVOLEUCOVORIN CALCIUM
     Indication: COLORECTAL CANCER METASTATIC
     Dosage: 312 MG, UNK
     Dates: start: 20160926

REACTIONS (2)
  - Hypertension [Unknown]
  - Hypertension [Recovered/Resolved]

NARRATIVE: CASE EVENT DATE: 20161118
